FAERS Safety Report 9424405 (Version 3)
Quarter: 2013Q4

REPORT INFORMATION
  Report Type: Spontaneous
  Country: IE (occurrence: IE)
  Receive Date: 20130729
  Receipt Date: 20131030
  Transmission Date: 20140711
  Serious: Yes (Hospitalization, Other)
  Sender: FDA-Public Use
  Company Number: IE-JNJFOC-20130713783

PATIENT
  Age: 69 Year
  Sex: Male

DRUGS (10)
  1. XARELTO [Suspect]
     Indication: CEREBROVASCULAR ACCIDENT PROPHYLAXIS
     Route: 048
  2. XARELTO [Suspect]
     Indication: ATRIAL FIBRILLATION
     Route: 048
  3. ACETYL SALICYLIC ACID [Concomitant]
     Route: 065
  4. ATORVASTATIN [Concomitant]
     Route: 065
  5. PERINDOPRIL [Concomitant]
     Route: 065
  6. LITHIUM CARBONATE [Concomitant]
     Route: 065
  7. LITHIUM CARBONATE [Concomitant]
     Route: 065
  8. BISOPROLOL [Concomitant]
     Route: 065
  9. CORDARONE [Concomitant]
     Route: 065
  10. FERROUS FUMARATE [Concomitant]
     Route: 065

REACTIONS (6)
  - Compartment syndrome [Unknown]
  - Deep vein thrombosis [Unknown]
  - Off label use [Unknown]
  - Contusion [Unknown]
  - Haematoma [Unknown]
  - International normalised ratio increased [Unknown]
